FAERS Safety Report 13773001 (Version 2)
Quarter: 2017Q3

REPORT INFORMATION
  Report Type: Spontaneous
  Country: US (occurrence: US)
  Receive Date: 20170720
  Receipt Date: 20170804
  Transmission Date: 20171127
  Serious: Yes (Hospitalization, Other)
  Sender: FDA-Public Use
  Company Number: US-PFIZER INC-2017313135

PATIENT
  Age: 34 Year
  Sex: Female

DRUGS (4)
  1. FLUDARABINE [Concomitant]
     Active Substance: FLUDARABINE PHOSPHATE
     Indication: ACUTE MYELOID LEUKAEMIA
     Dosage: UNK
  2. ALBUMIN [Concomitant]
     Active Substance: ALBUMIN HUMAN
     Indication: CORD BLOOD TRANSPLANT THERAPY
     Dosage: UNK
  3. DEXTRAN [Suspect]
     Active Substance: DEXTRAN
     Indication: STEM CELL TRANSPLANT
     Dosage: 50 ML, UNK, (FINAL VOLUME OF 500 ML)
     Route: 042
     Dates: start: 20170725
  4. CYCLOPHOSPHAMIDE. [Concomitant]
     Active Substance: CYCLOPHOSPHAMIDE
     Indication: ACUTE MYELOID LEUKAEMIA
     Dosage: UNK

REACTIONS (4)
  - Nausea [Recovering/Resolving]
  - Vomiting [Recovering/Resolving]
  - Cardiomyopathy [Recovering/Resolving]
  - Pulmonary oedema [Recovering/Resolving]
